FAERS Safety Report 9406305 (Version 1)
Quarter: 2013Q3

REPORT INFORMATION
  Report Type: Spontaneous
  Country: US (occurrence: US)
  Receive Date: 20130717
  Receipt Date: 20130717
  Transmission Date: 20140515
  Serious: No
  Sender: FDA-Public Use
  Company Number: US-009507513-1307USA006700

PATIENT
  Age: 83 Year
  Sex: Female
  Weight: 70.75 kg

DRUGS (19)
  1. CLARITIN [Suspect]
     Indication: HYPERSENSITIVITY
     Dosage: 5 MG, PRN
     Route: 048
     Dates: start: 20130529, end: 20130628
  2. CLARITIN [Suspect]
     Indication: MEDICAL OBSERVATION
  3. ASPIRIN [Concomitant]
     Indication: PRODUCT USED FOR UNKNOWN INDICATION
     Dosage: 81 MG, QD
  4. PANTOPRAZOLE [Concomitant]
     Indication: PRODUCT USED FOR UNKNOWN INDICATION
     Dosage: 40 MG, QD
  5. CLOPIDOGREL [Concomitant]
     Indication: PRODUCT USED FOR UNKNOWN INDICATION
     Dosage: 75 MG, QD
  6. LASIX (FUROSEMIDE) [Concomitant]
     Indication: FLUID RETENTION
     Dosage: 40 MG, QD
  7. INDOMETHACIN [Concomitant]
     Indication: ARTHRITIS
     Dosage: 50 MG, QD
  8. DOCUSATE SODIUM [Concomitant]
     Indication: PRODUCT USED FOR UNKNOWN INDICATION
     Dosage: 3 DF, QD
  9. IPRATROPIUM BROMIDE [Concomitant]
     Indication: PRODUCT USED FOR UNKNOWN INDICATION
     Dosage: 42 MG, BID
  10. TEMAZEPAM [Concomitant]
     Indication: PRODUCT USED FOR UNKNOWN INDICATION
     Dosage: 30 MG, QD
  11. SYNTHROID [Concomitant]
     Indication: THYROID DISORDER
     Dosage: 88 MICROGRAM, QD
  12. GABAPENTIN [Concomitant]
     Indication: PRODUCT USED FOR UNKNOWN INDICATION
     Dosage: 100 MG, QPM
  13. DEPOESTRADIOL [Concomitant]
     Indication: PRODUCT USED FOR UNKNOWN INDICATION
     Dosage: 5 MG, QPM
  14. NITROSTAT [Concomitant]
     Indication: PRODUCT USED FOR UNKNOWN INDICATION
     Dosage: 0.4 MG, PRN
  15. TYLENOL EXTRA STRENGTH [Concomitant]
     Indication: FIBROMYALGIA
     Dosage: UNK, PRN
  16. GNC PREVENTIVE NUTRITION MULTI ENZYME FORMULA [Concomitant]
     Indication: PRODUCT USED FOR UNKNOWN INDICATION
     Dosage: 1 DF, QD
  17. CALTRATE + D [Concomitant]
     Indication: PRODUCT USED FOR UNKNOWN INDICATION
     Dosage: 1 DF, QD
  18. LACTAID [Concomitant]
     Indication: PRODUCT USED FOR UNKNOWN INDICATION
     Dosage: 1 DF, TID
  19. CENTRUM SILVER [Concomitant]
     Indication: PRODUCT USED FOR UNKNOWN INDICATION
     Dosage: 1 DF, QD

REACTIONS (3)
  - Abdominal pain upper [Recovered/Resolved]
  - Nausea [Recovered/Resolved]
  - Diarrhoea [Recovered/Resolved]
